FAERS Safety Report 26004783 (Version 2)
Quarter: 2025Q4

REPORT INFORMATION
  Report Type: Report from Study
  Country: IN (occurrence: IN)
  Receive Date: 20251106
  Receipt Date: 20251211
  Transmission Date: 20260118
  Serious: Yes (Other)
  Sender: ROCHE
  Company Number: IN-ROCHE-10000389348

PATIENT
  Age: 37 Year
  Sex: Female

DRUGS (11)
  1. PHESGO [Suspect]
     Active Substance: HYALURONIDASE-ZZXF\PERTUZUMAB\TRASTUZUMAB
     Indication: HER2 positive breast cancer
     Route: 058
     Dates: start: 20250526
  2. KADCYLA [Suspect]
     Active Substance: ADO-TRASTUZUMAB EMTANSINE
     Indication: Breast cancer
     Route: 042
     Dates: start: 20251113
  3. DOCETAXEL [Concomitant]
     Active Substance: DOCETAXEL
  4. CARBOPLATIN [Concomitant]
     Active Substance: CARBOPLATIN
  5. GOSERELIN [Concomitant]
     Active Substance: GOSERELIN
  6. PEGASTA [Concomitant]
  7. STEMETIL MD [Concomitant]
  8. OLANZAPINE [Concomitant]
     Active Substance: OLANZAPINE
  9. REDOTIL [Concomitant]
  10. VENLAFAXINE HYDROCHLORIDE [Concomitant]
     Active Substance: VENLAFAXINE HYDROCHLORIDE
  11. DECDAK [Concomitant]

REACTIONS (3)
  - Off label use [Unknown]
  - HER2 positive breast cancer [Unknown]
  - Off label use [Unknown]
